FAERS Safety Report 6369552-9 (Version None)
Quarter: 2009Q3

REPORT INFORMATION
  Report Type: 
  Country: None (occurrence: None)
  Receive Date: 20090918
  Receipt Date: 20090904
  Transmission Date: 20100115
  Serious: Yes (Hospitalization, Disabling, Other)
  Sender: FDA-Public Use
  Company Number: APP200900578

PATIENT
  Age: 54 Year
  Sex: Female
  Weight: 59.4212 kg

DRUGS (4)
  1. HEPARIN SODIUM INJECTION [Suspect]
     Indication: EMBOLISM
     Dates: start: 20050801
  2. CELLCEPT [Concomitant]
  3. SULFA ANTIBIOTIC [Concomitant]
  4. ACYCLOVIR [Concomitant]

REACTIONS (11)
  - BLINDNESS TRANSIENT [None]
  - BLINDNESS UNILATERAL [None]
  - CATARACT [None]
  - EPISTAXIS [None]
  - EYE INFECTION [None]
  - GRAFT VERSUS HOST DISEASE [None]
  - HAEMOPTYSIS [None]
  - SKIN HAEMORRHAGE [None]
  - SKIN ULCER [None]
  - STOMATITIS [None]
  - TOOTH LOSS [None]
